FAERS Safety Report 7401929-2 (Version None)
Quarter: 2011Q2

REPORT INFORMATION
  Report Type: 
  Country: None (occurrence: None)
  Receive Date: 20110408
  Receipt Date: 20110404
  Transmission Date: 20111010
  Serious: Yes (Other)
  Sender: FDA-Public Use
  Company Number: US-TEVA-274646USA

PATIENT
  Age: 10 Year
  Sex: Female

DRUGS (3)
  1. MELPHALAN [Suspect]
     Indication: NEUROECTODERMAL NEOPLASM
  2. THIOTEPA, FOR INJECTION, 15 MG/VIAL IN 2 ML VIAL [Suspect]
     Indication: NEUROECTODERMAL NEOPLASM
  3. BUSULFAN [Suspect]
     Indication: NEUROECTODERMAL NEOPLASM

REACTIONS (11)
  - THROMBOCYTOPENIA [None]
  - THROMBOTIC MICROANGIOPATHY [None]
  - NEUTROPENIA [None]
  - INFECTION [None]
  - HAEMODIALYSIS [None]
  - GENERAL PHYSICAL HEALTH DETERIORATION [None]
  - POLYOMAVIRUS-ASSOCIATED NEPHROPATHY [None]
  - LYMPHOPENIA [None]
  - CONVULSION [None]
  - APNOEA [None]
  - HYPOGAMMAGLOBULINAEMIA [None]
